FAERS Safety Report 7187269-8 (Version None)
Quarter: 2010Q4

REPORT INFORMATION
  Report Type: 
  Country: None (occurrence: None)
  Receive Date: 20101222
  Receipt Date: 20101217
  Transmission Date: 20110411
  Serious: Yes (Hospitalization, Other)
  Sender: FDA-Public Use
  Company Number: US-ABBOTT-10P-163-0692474-00

PATIENT
  Sex: Female
  Weight: 83.99 kg

DRUGS (13)
  1. ZEMPLAR [Suspect]
     Indication: RENAL FAILURE
     Dosage: 1 MCG M/W/F
     Route: 048
     Dates: start: 20090101
  2. LIPITOR [Concomitant]
     Indication: BLOOD CHOLESTEROL INCREASED
     Route: 048
     Dates: end: 20101214
  3. LIPITOR [Concomitant]
     Route: 048
     Dates: start: 20101214
  4. LISINOPRIL AND HYDROCHLOROTHIAZIDE [Concomitant]
     Indication: BLOOD PRESSURE
     Dosage: 20/12.5 DAILY
     Route: 048
     Dates: end: 20101214
  5. LISINOPRIL AND HYDROCHLOROTHIAZIDE [Concomitant]
     Dosage: 1/2-20/12.5 TAB DAILY
     Route: 048
     Dates: start: 20101214
  6. NEXIUM [Concomitant]
     Indication: GASTRIC DISORDER
     Route: 048
  7. TOPROL-XL [Concomitant]
     Indication: CARDIAC DISORDER
     Route: 048
  8. ZOLOFT [Concomitant]
     Indication: AFFECTIVE DISORDER
     Route: 048
  9. AMBIEN [Concomitant]
     Indication: INSOMNIA
     Route: 048
  10. DRISDOL [Concomitant]
     Indication: PRODUCT USED FOR UNKNOWN INDICATION
     Route: 048
  11. ASPIRIN [Concomitant]
     Indication: PRODUCT USED FOR UNKNOWN INDICATION
     Route: 048
  12. LANTUS [Concomitant]
     Indication: DIABETES MELLITUS
     Route: 058
  13. ZOFRAN ODT [Concomitant]
     Indication: NAUSEA
     Route: 058

REACTIONS (5)
  - BLOOD PRESSURE DECREASED [None]
  - DEHYDRATION [None]
  - DIARRHOEA [None]
  - HYPERTENSION [None]
  - PANCREATITIS [None]
